FAERS Safety Report 4683768-9 (Version None)
Quarter: 2005Q2

REPORT INFORMATION
  Report Type: 
  Country: None (occurrence: None)
  Receive Date: 20050602
  Receipt Date: 20050404
  Transmission Date: 20051028
  Serious: No
  Sender: FDA-Public Use
  Company Number: USA050494849

PATIENT
  Age: 28 Year
  Sex: Female

DRUGS (5)
  1. CYMBALTA [Suspect]
     Indication: FIBROMYALGIA
     Dosage: 60 MG
     Dates: end: 20050401
  2. PEPCID AC [Concomitant]
  3. ZYRTEC-D 12 HOUR [Concomitant]
  4. INTAL [Concomitant]
  5. ALBUTEROL [Concomitant]

REACTIONS (7)
  - AGITATION [None]
  - FEELING DRUNK [None]
  - GAIT DISTURBANCE [None]
  - HYPERSENSITIVITY [None]
  - MALAISE [None]
  - NAUSEA [None]
  - SOMNOLENCE [None]
